FAERS Safety Report 5233311-0 (Version None)
Quarter: 2007Q1

REPORT INFORMATION
  Report Type: 
  Country: None (occurrence: None)
  Receive Date: 20070206
  Receipt Date: 20070123
  Transmission Date: 20070707
  Serious: Yes (Hospitalization)
  Sender: FDA-Public Use
  Company Number: T200700063

PATIENT
  Age: 43 Year
  Sex: Female
  Weight: 90.7 kg

DRUGS (7)
  1. METHADONE HCL [Suspect]
     Indication: SCIATICA
     Dosage: SEE IMAGE
     Route: 048
     Dates: start: 20061001, end: 20061220
  2. METHADONE HCL [Suspect]
     Indication: SCIATICA
     Dosage: SEE IMAGE
     Route: 048
     Dates: start: 20061221, end: 20070116
  3. LITHIUM CARBONATE [Suspect]
     Indication: BIPOLAR DISORDER
     Dosage: 300MG, AT BEDTIME, ORAL
     Route: 048
     Dates: start: 20020101, end: 20070116
  4. SEROQUEL /01270901/ (QUETIAPINE) [Concomitant]
  5. KLONOPIN [Concomitant]
  6. FENTANYL [Concomitant]
  7. CORTISONE ACETATE [Concomitant]

REACTIONS (4)
  - CHOLECYSTECTOMY [None]
  - DECREASED APPETITE [None]
  - NAUSEA [None]
  - VOMITING [None]
